FAERS Safety Report 9292359 (Version 1)
Quarter: 2013Q2

REPORT INFORMATION
  Report Type: Spontaneous
  Country: US (occurrence: US)
  Receive Date: 20130516
  Receipt Date: 20130516
  Transmission Date: 20140414
  Serious: Yes (Other)
  Sender: FDA-Public Use
  Company Number: US-BAYER-2013-060019

PATIENT
  Age: 32 Year
  Sex: Female
  Weight: 74.83 kg

DRUGS (12)
  1. YAZ [Suspect]
     Dosage: UNK
  2. GIANVI [Suspect]
  3. NASONEX [Concomitant]
  4. PROVENTIL [Concomitant]
  5. PREDNISONE [Concomitant]
  6. ONDANSETRON [Concomitant]
  7. MECLIZINE [Concomitant]
  8. CYMBALTA [Concomitant]
  9. TRAMADOL HCL CF [Concomitant]
  10. ATARAX [Concomitant]
     Dosage: 25 MG, Q4-6 H
  11. PREVACID [Concomitant]
     Dosage: 30 MG, DAILY
  12. ZYRTEC [Concomitant]
     Dosage: 10 MG, DAILY

REACTIONS (1)
  - Deep vein thrombosis [None]
